FAERS Safety Report 14393895 (Version 1)
Quarter: 2018Q1

REPORT INFORMATION
  Report Type: Spontaneous
  Country: US (occurrence: US)
  Receive Date: 20180116
  Receipt Date: 20180116
  Transmission Date: 20180509
  Serious: No
  Sender: FDA-Public Use
  Company Number: US-BAYER-2018-005613

PATIENT
  Age: 21 Year
  Sex: Female
  Weight: 61 kg

DRUGS (1)
  1. ZEGERID OTC CAPSULES [Suspect]
     Active Substance: OMEPRAZOLE\SODIUM BICARBONATE
     Dosage: 2 DF, QD
     Route: 048
     Dates: start: 20180102

REACTIONS (3)
  - Dysgeusia [Unknown]
  - Poor quality drug administered [Unknown]
  - Nausea [Unknown]

NARRATIVE: CASE EVENT DATE: 20180102
